FAERS Safety Report 8514885-0 (Version None)
Quarter: 2012Q3

REPORT INFORMATION
  Report Type: 
  Country: None (occurrence: None)
  Receive Date: 20120717
  Receipt Date: 20120711
  Transmission Date: 20120928
  Serious: Yes (Other)
  Sender: FDA-Public Use
  Company Number: US-PFIZER INC-2012166932

PATIENT
  Sex: Male

DRUGS (18)
  1. FLOMAX [Concomitant]
     Dosage: UNK MG, UNK
  2. GLIPIZIDE [Concomitant]
     Dosage: UNK
     Route: 048
  3. VIAGRA [Suspect]
     Indication: SEXUALLY ACTIVE
     Dosage: 100 MG ONE TO TWO HOURS PRIOR TO SEXUAL ACTIVITY
  4. FLOMAX [Concomitant]
     Dosage: UNK, 2X/DAY (TWICE A DAY)
  5. CORTEF [Concomitant]
     Dosage: UNK MG, UNK
  6. HYDROCHLOROTHIAZIDE [Concomitant]
     Dosage: UNK
     Route: 048
  7. CRESTOR [Concomitant]
     Dosage: UNK MG, UNK
  8. NEXIUM [Concomitant]
     Dosage: UNK MG, UNK
  9. ASCORBIC ACID [Concomitant]
     Dosage: UNK MG, UNK
  10. LYRICA [Concomitant]
     Dosage: UNK MG, UNK
  11. ASPIRIN [Concomitant]
     Dosage: 81 UNK, UNK
  12. CASODEX [Concomitant]
     Dosage: UNK MG, UNK
  13. TOPROL-XL [Concomitant]
     Dosage: 200 MG, 24 HR TABLET
  14. MULTI-VITAMINS [Concomitant]
     Dosage: UNK
  15. MOTRIN [Concomitant]
     Dosage: UNK
     Route: 048
  16. FLEXERIL [Concomitant]
     Dosage: UNK MG, UNK
  17. GLUCOPHAGE [Concomitant]
     Dosage: UNK MG, UNK
  18. SYNTHROID [Concomitant]
     Dosage: UNK UG, UNK

REACTIONS (1)
  - PROSTATE CANCER [None]
